FAERS Safety Report 4885107-7 (Version None)
Quarter: 2006Q1

REPORT INFORMATION
  Report Type: 
  Country: None (occurrence: None)
  Receive Date: 20060119
  Receipt Date: 20060116
  Transmission Date: 20060701
  Serious: Yes (Life-Threatening)
  Sender: FDA-Public Use
  Company Number: PHFR2006GB00532

PATIENT

DRUGS (1)
  1. DICLOFENAC [Suspect]
     Indication: GOUT
     Dosage: 100MG/DAY
     Route: 048
     Dates: start: 20051210, end: 20051210

REACTIONS (2)
  - HYPOTENSION [None]
  - SWOLLEN TONGUE [None]
